FAERS Safety Report 23028175 (Version 2)
Quarter: 2023Q4

REPORT INFORMATION
  Report Type: Spontaneous
  Country: JP (occurrence: JP)
  Receive Date: 20231004
  Receipt Date: 20231023
  Transmission Date: 20240110
  Serious: Yes (Other)
  Sender: FDA-Public Use
  Company Number: JP-MSD-M2023-38727

PATIENT
  Age: 6 Decade
  Sex: Female

DRUGS (2)
  1. TEMODAL [Suspect]
     Active Substance: TEMOZOLOMIDE
     Indication: Malignant glioma
     Dosage: UNK
     Route: 048
  2. TEMODAL [Suspect]
     Active Substance: TEMOZOLOMIDE
     Indication: Malignant glioma
     Dosage: ABOUT 50% OF HER BODY SURFACE AREA EQUIVALENT DOSE
     Route: 041

REACTIONS (3)
  - Malignant neoplasm progression [Unknown]
  - Dysphagia [Unknown]
  - Intentional underdose [Unknown]
